FAERS Safety Report 7583439-5 (Version None)
Quarter: 2011Q2

REPORT INFORMATION
  Report Type: 
  Country: None (occurrence: None)
  Receive Date: 20110623
  Receipt Date: 20110616
  Transmission Date: 20111010
  Serious: Yes (Hospitalization)
  Sender: FDA-Public Use
  Company Number: 1000021644

PATIENT
  Age: 33 Year
  Sex: Female

DRUGS (1)
  1. CELEXA [Suspect]
     Indication: DEPRESSION
     Dosage: 10 MG (10 MG, 1 IN 1 D), ORAL
     Route: 048
     Dates: start: 20110615, end: 20110615

REACTIONS (5)
  - ELECTROCARDIOGRAM QT PROLONGED [None]
  - RESPIRATORY ACIDOSIS [None]
  - HYPERREFLEXIA [None]
  - MULTIPLE DRUG OVERDOSE [None]
  - METABOLIC ALKALOSIS [None]
